FAERS Safety Report 24709642 (Version 1)
Quarter: 2024Q4

REPORT INFORMATION
  Report Type: Spontaneous
  Country: US (occurrence: US)
  Receive Date: 20241209
  Receipt Date: 20241209
  Transmission Date: 20250115
  Serious: No
  Sender: ROCHE
  Company Number: US-ROCHE-10000147679

PATIENT
  Sex: Female

DRUGS (2)
  1. ACTEMRA [Suspect]
     Active Substance: TOCILIZUMAB
     Indication: Rheumatoid arthritis
     Dosage: FORM STRENGTH: 400MG/20ML
     Route: 042
     Dates: start: 202410
  2. ACTEMRA [Suspect]
     Active Substance: TOCILIZUMAB
     Indication: Polyneuropathy

REACTIONS (1)
  - Dyspepsia [Unknown]
